FAERS Safety Report 19230406 (Version 2)
Quarter: 2021Q2

REPORT INFORMATION
  Report Type: Report from Study
  Country: ES (occurrence: ES)
  Receive Date: 20210507
  Receipt Date: 20210608
  Transmission Date: 20210717
  Serious: Yes (Death, Hospitalization)
  Sender: FDA-Public Use
  Company Number: ES-ROCHE-2825707

PATIENT
  Age: 59 Year
  Sex: Male
  Weight: 70 kg

DRUGS (4)
  1. ATEZOLIZUMAB. [Suspect]
     Active Substance: ATEZOLIZUMAB
     Indication: NON-SMALL CELL LUNG CANCER
     Dosage: ON 17/FEB/2021, HE RECEIVED THE MOST RECENT DOSE OF ATEZOLIZUMAB PRIOR TO ONSET OF SERIOUS ADVERSE E
     Route: 042
     Dates: start: 20201015
  2. DEXAMETHASONE. [Concomitant]
     Active Substance: DEXAMETHASONE
  3. XL184 [Suspect]
     Active Substance: CABOZANTINIB
     Indication: NON-SMALL CELL LUNG CANCER
     Dosage: ON 23/APR/2021, HE RECEIVED THE MOST RECENT DOSE OF CABOZANTINIB PRIOR TO ONSET OF SERIOUS ADVERSE E
     Route: 048
     Dates: start: 20201015, end: 20210424
  4. XL184 [Suspect]
     Active Substance: CABOZANTINIB
     Route: 048

REACTIONS (1)
  - Listeria encephalitis [Fatal]

NARRATIVE: CASE EVENT DATE: 20210423
